FAERS Safety Report 14893488 (Version 2)
Quarter: 2018Q3

REPORT INFORMATION
  Report Type: Spontaneous
  Country: US (occurrence: US)
  Receive Date: 20180514
  Receipt Date: 20180711
  Transmission Date: 20181010
  Serious: Yes (Other)
  Sender: FDA-Public Use
  Company Number: US-SHIRE-US201816991

PATIENT
  Age: 54 Year
  Sex: Male

DRUGS (5)
  1. GAMMAGARD LIQUID [Suspect]
     Active Substance: HUMAN IMMUNOGLOBULIN G
     Indication: LIVER TRANSPLANT REJECTION
     Dosage: 25 G, 2X A WEEK 3 DOSES
     Route: 065
     Dates: start: 20180329, end: 20180419
  2. GAMMAGARD LIQUID [Suspect]
     Active Substance: HUMAN IMMUNOGLOBULIN G
     Indication: OFF LABEL USE
  3. RITUXAN [Suspect]
     Active Substance: RITUXIMAB
     Indication: LIVER TRANSPLANT REJECTION
     Dosage: 1 DOSE, UNK
     Route: 065
     Dates: start: 20180329
  4. PREDNISONE. [Suspect]
     Active Substance: PREDNISONE
     Indication: LIVER TRANSPLANT REJECTION
     Dosage: UNK
     Route: 065
     Dates: start: 20180329
  5. DEXAMETHASONE. [Suspect]
     Active Substance: DEXAMETHASONE
     Indication: LIVER TRANSPLANT REJECTION
     Dosage: UNK
     Route: 065
     Dates: start: 20180329

REACTIONS (2)
  - Off label use [Unknown]
  - Hepatitis B [Unknown]

NARRATIVE: CASE EVENT DATE: 20180330
